FAERS Safety Report 4788850-3 (Version None)
Quarter: 2005Q4

REPORT INFORMATION
  Report Type: 
  Country: None (occurrence: None)
  Receive Date: 20051005
  Receipt Date: 20050926
  Transmission Date: 20060501
  Serious: Yes (Life-Threatening, Hospitalization)
  Sender: FDA-Public Use
  Company Number: DE-BRISTOL-MYERS SQUIBB COMPANY-13122692

PATIENT
  Age: 28 Year
  Sex: Female

DRUGS (2)
  1. MITOMYCIN [Suspect]
     Indication: ANAL CANCER
     Route: 042
     Dates: start: 20030610, end: 20030610
  2. FLUOROURACIL [Concomitant]
     Indication: ANAL CANCER
     Route: 042
     Dates: start: 20030612, end: 20030612

REACTIONS (10)
  - BLOOD CREATININE INCREASED [None]
  - CARDIAC FAILURE [None]
  - CHEST DISCOMFORT [None]
  - HAEMOLYSIS [None]
  - HYPERAESTHESIA [None]
  - NERVOUS SYSTEM DISORDER [None]
  - PARAPLEGIA [None]
  - RETINAL ARTERY OCCLUSION [None]
  - STUPOR [None]
  - THROMBOTIC THROMBOCYTOPENIC PURPURA [None]
